FAERS Safety Report 7310888-2 (Version None)
Quarter: 2011Q1

REPORT INFORMATION
  Report Type: 
  Country: None (occurrence: None)
  Receive Date: 20110224
  Receipt Date: 20110211
  Transmission Date: 20110831
  Serious: Yes (Other)
  Sender: FDA-Public Use
  Company Number: FR-PFIZER INC-FR-WYE-H17587510

PATIENT
  Sex: Female

DRUGS (18)
  1. COVERSYL [Suspect]
     Dosage: 8 MG, FREQUENCY UNSPECIFIED
     Route: 048
     Dates: start: 20100422, end: 20100512
  2. LOVENOX [Suspect]
     Dosage: 1 DOSAGE FORMS
     Route: 058
     Dates: start: 20100505, end: 20100512
  3. TARGOCID [Suspect]
     Indication: ENDOCARDITIS
     Dosage: 600 MILLIGRAM, 2 DOSAGE FORMS
     Route: 042
     Dates: start: 20100322, end: 20100402
  4. RIFADIN [Suspect]
     Indication: STAPHYLOCOCCAL INFECTION
     Dosage: 2 DOSAGE FORMS
     Route: 042
     Dates: start: 20100402, end: 20100512
  5. HEPARIN [Concomitant]
     Dosage: UNK
     Route: 042
     Dates: start: 20100419, end: 20100422
  6. ZELITREX [Concomitant]
     Dosage: UNK
     Route: 048
     Dates: start: 20100424, end: 20100505
  7. TARGOCID [Suspect]
     Dosage: 400.0 MG, 1X/12 HR
     Route: 042
     Dates: start: 20100422, end: 20100511
  8. STILNOX [Concomitant]
     Route: 048
  9. LASIX [Suspect]
     Dosage: 2 DOSAGE FORMS (20MG/2ML)
     Route: 042
     Dates: start: 20100321, end: 20100512
  10. ACARBOSE [Concomitant]
  11. ASPIRIN [Concomitant]
     Route: 048
  12. ELIDIUR [Concomitant]
     Dosage: UNK
     Route: 048
     Dates: start: 20100321
  13. CARDENSIEL [Suspect]
     Dosage: UNSPECIFIED
     Route: 048
  14. ORBENIN CAP [Suspect]
     Indication: STAPHYLOCOCCAL INFECTION
  15. TEMESTA [Concomitant]
     Route: 048
  16. INIPOMP [Suspect]
     Dosage: 40.0 MG, 1X/DAY
     Route: 048
     Dates: start: 20100321, end: 20100512
  17. AMLOR [Suspect]
     Dosage: UNSPECIFIED
     Route: 048
     Dates: end: 20100510
  18. LANTUS [Concomitant]
     Dosage: UNK
     Route: 058
     Dates: start: 20100321

REACTIONS (2)
  - INTERSTITIAL LUNG DISEASE [None]
  - RENAL FAILURE ACUTE [None]
